FAERS Safety Report 16933149 (Version 1)
Quarter: 2019Q4

REPORT INFORMATION
  Report Type: Spontaneous
  Country: SG (occurrence: SG)
  Receive Date: 20191018
  Receipt Date: 20191018
  Transmission Date: 20200122
  Serious: Yes (Other)
  Sender: FDA-Public Use
  Company Number: SG-ROCHE-2435612

PATIENT
  Age: 48 Year
  Sex: Female
  Weight: 56.4 kg

DRUGS (4)
  1. PARACETAMOL [Concomitant]
     Active Substance: ACETAMINOPHEN
     Indication: PREMEDICATION
     Dosage: 1 TIME STAT
     Route: 048
     Dates: start: 20190816, end: 20190816
  2. DIPHENHYDRAMINE. [Concomitant]
     Active Substance: DIPHENHYDRAMINE
     Indication: PREMEDICATION
     Dosage: 1 TIME STAT
     Route: 042
     Dates: start: 20190816, end: 20190816
  3. HYDROCORTISONE. [Concomitant]
     Active Substance: HYDROCORTISONE
     Indication: PREMEDICATION
     Dosage: 1 TIME STAT
     Route: 042
     Dates: start: 20190816, end: 20190816
  4. RITUXIMAB. [Suspect]
     Active Substance: RITUXIMAB
     Indication: LYMPHOMA
     Dosage: 1 TIME STAT
     Route: 042
     Dates: start: 20190816, end: 20190816

REACTIONS (1)
  - Throat tightness [Recovered/Resolved]

NARRATIVE: CASE EVENT DATE: 20190816
